FAERS Safety Report 19798683 (Version 4)
Quarter: 2022Q1

REPORT INFORMATION
  Report Type: Spontaneous
  Country: JP (occurrence: JP)
  Receive Date: 20210907
  Receipt Date: 20220112
  Transmission Date: 20220423
  Serious: Yes (Hospitalization, Disabling)
  Sender: FDA-Public Use
  Company Number: JP-CELGENE-JPN-20210809718

PATIENT
  Age: 71 Year
  Sex: Female
  Weight: 48.5 kg

DRUGS (13)
  1. ABRAXANE [Suspect]
     Active Substance: PACLITAXEL
     Indication: Pancreatic carcinoma metastatic
     Route: 041
     Dates: start: 20200514
  2. ABRAXANE [Suspect]
     Active Substance: PACLITAXEL
     Route: 041
     Dates: start: 20210819
  3. GEMCITABINE [Suspect]
     Active Substance: GEMCITABINE
     Indication: Pancreatic carcinoma metastatic
     Route: 041
     Dates: start: 20200514
  4. GEMCITABINE [Suspect]
     Active Substance: GEMCITABINE
     Route: 041
     Dates: start: 20210819
  5. PANCRELIPASE [Suspect]
     Active Substance: PANCRELIPASE
     Indication: Pancreaticoduodenectomy
     Dosage: 1800 MILLIGRAM
     Route: 048
     Dates: start: 201905
  6. VONOPRAZAN FUMARATE [Suspect]
     Active Substance: VONOPRAZAN FUMARATE
     Indication: Gastric ulcer
     Dosage: 20 MILLIGRAM
     Route: 048
     Dates: start: 201909
  7. TEPRENONE [Suspect]
     Active Substance: TEPRENONE
     Indication: Gastric ulcer
     Dosage: 150 MILLIGRAM
     Route: 048
     Dates: start: 201909
  8. LINAGLIPTIN [Suspect]
     Active Substance: LINAGLIPTIN
     Indication: Diabetes mellitus
     Dosage: 5 MILLIGRAM
     Route: 048
  9. GLICLAZIDE [Suspect]
     Active Substance: GLICLAZIDE
     Indication: Diabetes mellitus
     Dosage: 40 MILLIGRAM
     Route: 048
  10. ESAXERENONE [Suspect]
     Active Substance: ESAXERENONE
     Indication: Hypertension
     Dosage: 2.5 MILLIGRAM
     Route: 048
  11. INDAPAMIDE [Suspect]
     Active Substance: INDAPAMIDE
     Indication: Hypertension
     Dosage: 1 MILLIGRAM
     Route: 048
  12. CLOPIDOGREL [Concomitant]
     Active Substance: CLOPIDOGREL BISULFATE
     Indication: Lacunar infarction
     Route: 048
  13. UNSPECIFIED INGREDIENT [Concomitant]
     Active Substance: UNSPECIFIED INGREDIENT
     Indication: Pain
     Route: 065
     Dates: start: 20210908

REACTIONS (1)
  - Dry gangrene [Not Recovered/Not Resolved]

NARRATIVE: CASE EVENT DATE: 20210819
